FAERS Safety Report 10311330 (Version 1)
Quarter: 2014Q3

REPORT INFORMATION
  Report Type: Spontaneous
  Country: GB (occurrence: GB)
  Receive Date: 20140717
  Receipt Date: 20140717
  Transmission Date: 20150326
  Serious: Yes (Hospitalization, Other)
  Sender: FDA-Public Use
  Company Number: GB-BRISTOL-MYERS SQUIBB COMPANY-21172879

PATIENT
  Age: 63 Year
  Sex: Female

DRUGS (3)
  1. ABILIFY [Suspect]
     Active Substance: ARIPIPRAZOLE
     Indication: PSYCHOTIC DISORDER
     Dosage: INTERRUPTED IN AUG2013?24SEP13 TO 14FEB14?18NOV13:20MG
     Route: 048
  2. ARIPIPRAZOLE IM DEPOT [Suspect]
     Active Substance: ARIPIPRAZOLE
     Indication: SCHIZOAFFECTIVE DISORDER
     Dosage: 400MG-QM-14FEB14
     Route: 030
     Dates: end: 20140114
  3. FLUOXETINE [Concomitant]
     Active Substance: FLUOXETINE\FLUOXETINE HYDROCHLORIDE
     Indication: DEPRESSIVE SYMPTOM
     Dosage: 18DEC13:20MG?30DEC13:30MG?27JAN14:20MG
     Dates: start: 20131205

REACTIONS (6)
  - Mania [Recovered/Resolved]
  - Feeling abnormal [Unknown]
  - Confusional state [Unknown]
  - Hallucination, auditory [Unknown]
  - Off label use [Unknown]
  - Psychotic disorder [Unknown]

NARRATIVE: CASE EVENT DATE: 2010
